FAERS Safety Report 11292376 (Version 1)
Quarter: 2015Q3

REPORT INFORMATION
  Report Type: Spontaneous
  Country: US (occurrence: None)
  Receive Date: 20150721
  Receipt Date: 20150721
  Transmission Date: 20151125
  Serious: Yes (Other)
  Sender: FDA-Public Use
  Company Number: None

PATIENT
  Age: 57 Year
  Sex: Female
  Weight: 138 kg

DRUGS (10)
  1. ESTRADIOL TRANSDERMAL SYSTEM [Suspect]
     Active Substance: ESTRADIOL
     Indication: HYSTERECTOMY
     Dosage: 1 PATCH
     Route: 062
     Dates: start: 20150501, end: 20150713
  2. XANAX [Concomitant]
     Active Substance: ALPRAZOLAM
  3. ESTRADIOL TRANSDERMAL SYSTEM [Suspect]
     Active Substance: ESTRADIOL
     Indication: OOPHORECTOMY
     Dosage: 1 PATCH
     Route: 062
     Dates: start: 20150501, end: 20150713
  4. METOPROLOL [Concomitant]
     Active Substance: METOPROLOL
  5. BENADRYL [Concomitant]
     Active Substance: DIPHENHYDRAMINE HYDROCHLORIDE
  6. ALKA SELTZER [Concomitant]
     Active Substance: ANHYDROUS CITRIC ACID\ASPIRIN\SODIUM BICARBONATE
  7. ADVIL [Concomitant]
     Active Substance: IBUPROFEN
  8. PANTOPRAZOLE [Concomitant]
     Active Substance: PANTOPRAZOLE SODIUM
  9. PRISTIQ EXTENDED RELEASE [Concomitant]
     Active Substance: DESVENLAFAXINE SUCCINATE
  10. BUTLBTL/APP/CAFF [Concomitant]

REACTIONS (12)
  - Condition aggravated [None]
  - Atrophic vulvovaginitis [None]
  - Drug ineffective [None]
  - Product substitution issue [None]
  - Vulvovaginal mycotic infection [None]
  - Product quality issue [None]
  - Depression [None]
  - Insomnia [None]
  - Vaginitis bacterial [None]
  - Anxiety [None]
  - Agitation [None]
  - Menopausal symptoms [None]

NARRATIVE: CASE EVENT DATE: 20150501
